FAERS Safety Report 10562315 (Version 1)
Quarter: 2014Q4

REPORT INFORMATION
  Report Type: Spontaneous
  Country: IT (occurrence: None)
  Receive Date: 20141031
  Receipt Date: 20141031
  Transmission Date: 20150529
  Serious: Yes (Other)
  Sender: FDA-Public Use
  Company Number: 2594393

PATIENT
  Age: 63 Year
  Sex: Male
  Weight: 100 kg

DRUGS (3)
  1. OXALIPLATIN SUN [Concomitant]
     Active Substance: OXALIPLATIN
  2. FLUOROURACIL TEVA [Concomitant]
     Active Substance: FLUOROURACIL
  3. IRINOTECAN HYDROCHLORIDE. [Suspect]
     Active Substance: IRINOTECAN HYDROCHLORIDE
     Indication: PANCREATIC CARCINOMA
     Dosage: CYCLICAL, (NOT OTHERWISE SPECIFIED)
     Route: 042
     Dates: start: 20140715, end: 20140910

REACTIONS (2)
  - Paraesthesia oral [None]
  - Dysarthria [None]

NARRATIVE: CASE EVENT DATE: 20140827
